FAERS Safety Report 11542879 (Version 1)
Quarter: 2015Q3

REPORT INFORMATION
  Report Type: Spontaneous
  Country: US (occurrence: US)
  Receive Date: 20150903
  Receipt Date: 20150903
  Transmission Date: 20151125
  Serious: No
  Sender: FDA-Public Use
  Company Number: US-ELI_LILLY_AND_COMPANY-US201205004259

PATIENT
  Sex: Female

DRUGS (2)
  1. LANTUS [Concomitant]
     Active Substance: INSULIN GLARGINE
     Dosage: UNK
  2. HUMALOG MIX75/25 [Suspect]
     Active Substance: INSULIN LISPRO
     Indication: DIABETES MELLITUS
     Dosage: UNK UNK, PRN
     Dates: start: 2008

REACTIONS (13)
  - Pain in extremity [Unknown]
  - Neuropathy peripheral [Unknown]
  - Onychalgia [Unknown]
  - Cellulitis [Unknown]
  - Lipodystrophy acquired [Unknown]
  - Muscle disorder [Unknown]
  - Urine analysis abnormal [Unknown]
  - Gait disturbance [Unknown]
  - Blood glucose increased [Unknown]
  - Sebaceous glands overactivity [Unknown]
  - Skin ulcer [Unknown]
  - Blood glucose decreased [Unknown]
  - Skin plaque [Unknown]
